FAERS Safety Report 9170517 (Version 2)
Quarter: 2013Q2

REPORT INFORMATION
  Report Type: Spontaneous
  Country: US (occurrence: None)
  Receive Date: 20130312
  Receipt Date: 20130412
  Transmission Date: 20140414
  Serious: Yes (Life-Threatening, Hospitalization)
  Sender: FDA-Public Use
  Company Number: 13-F-US-00082

PATIENT
  Age: 62 Year
  Sex: Male
  Weight: 144.2 kg

DRUGS (19)
  1. FOLOTYN [Suspect]
     Indication: PERIPHERAL T-CELL LYMPHOMA UNSPECIFIED
     Route: 042
     Dates: start: 20121116, end: 20130116
  2. VINCRISTINE [Suspect]
     Indication: PERIPHERAL T-CELL LYMPHOMA UNSPECIFIED
     Route: 042
     Dates: start: 20121102, end: 20121117
  3. ETOPOSIDE (ETOPOSIDE) [Suspect]
     Indication: PERIPHERAL T-CELL LYMPHOMA UNSPECIFIED
     Route: 042
     Dates: start: 20121102, end: 20121217
  4. ATENOLOL (ATENOLOL) [Concomitant]
     Indication: PERIPHERAL T-CELL LYMPHOMA UNSPECIFIED
     Dosage: 100 MG, QD DAYS 1-5, ORAL
     Route: 048
     Dates: start: 20111102, end: 20121221
  5. CHLORTHALIDONE (CHLORTALIDONE) [Concomitant]
  6. CALCIUM [Concomitant]
  7. CHOLECALCIFEROL (COLECALCIFEROL) [Concomitant]
  8. CYCLOPHOSPHAMIDE [Suspect]
     Indication: PERIPHERAL T-CELL LYMPHOMA UNSPECIFIED
     Route: 042
     Dates: start: 20121102, end: 20121217
  9. FOLIC ACID [Concomitant]
  10. LOSARTAN (LOSARTAN) [Concomitant]
  11. LUMIGAN (BIMATOPROST) [Concomitant]
  12. LYSINE (LYSINE) [Concomitant]
  13. PROCHLORPERAZINE (PROCHLORPERAZINE) [Concomitant]
  14. ACETAMINOPHEN (PARACETAMOL) [Concomitant]
  15. VESICARE /01735901/(SOLIFENACIN) [Concomitant]
  16. VITAMIN D3 (COLECALCIFEROL) [Concomitant]
  17. ZOFRAN /00955301/(ONDANSETRON) [Concomitant]
  18. ATIVAN (LORAZEPAM) [Concomitant]
  19. AZILECT /01759902/ (RASAGILINE MESYLATE) [Concomitant]

REACTIONS (14)
  - Sepsis [None]
  - Respiratory failure [None]
  - Lung infection [None]
  - Encephalopathy [None]
  - Dyspnoea [None]
  - Acute respiratory distress syndrome [None]
  - Hallucination, visual [None]
  - Pleural effusion [None]
  - Renal failure acute [None]
  - Hypovolaemia [None]
  - International normalised ratio increased [None]
  - Activated partial thromboplastin time prolonged [None]
  - Vitamin K deficiency [None]
  - Pneumocystis jirovecii pneumonia [None]
